FAERS Safety Report 7508346-5 (Version None)
Quarter: 2011Q2

REPORT INFORMATION
  Report Type: 
  Country: None (occurrence: None)
  Receive Date: 20110527
  Receipt Date: 20110521
  Transmission Date: 20111010
  Serious: Yes (Hospitalization)
  Sender: FDA-Public Use
  Company Number: IT-PFIZER INC-2011110139

PATIENT
  Age: 11 Year
  Sex: Male

DRUGS (1)
  1. SULFASALAZINE [Suspect]
     Indication: JUVENILE ARTHRITIS
     Dosage: 1600 MG, 1X/DAY
     Dates: start: 20110101, end: 20110310

REACTIONS (4)
  - RASH [None]
  - PRURITUS [None]
  - PAIN IN EXTREMITY [None]
  - BURNING SENSATION [None]
